FAERS Safety Report 9065416 (Version 1)
Quarter: 2013Q1

REPORT INFORMATION
  Report Type: Spontaneous
  Country: IE (occurrence: IE)
  Receive Date: 20130214
  Receipt Date: 20130214
  Transmission Date: 20140127
  Serious: Yes (Other)
  Sender: FDA-Public Use
  Company Number: IE-JNJFOC-20130204371

PATIENT
  Sex: Female

DRUGS (4)
  1. SIMPONI [Suspect]
     Indication: PSORIATIC ARTHROPATHY
     Route: 058
     Dates: start: 20110906
  2. XANAX [Concomitant]
     Route: 065
  3. LEXAPRO [Concomitant]
     Route: 065
  4. FUMADERM [Concomitant]
     Route: 065

REACTIONS (1)
  - Gastric ulcer [Unknown]
